FAERS Safety Report 11293895 (Version 1)
Quarter: 2015Q3

REPORT INFORMATION
  Report Type: Spontaneous
  Country: FR (occurrence: FR)
  Receive Date: 20150722
  Receipt Date: 20150722
  Transmission Date: 20151125
  Serious: Yes (Other)
  Sender: FDA-Public Use
  Company Number: PHHY2015FR086912

PATIENT
  Age: 57 Year
  Sex: Female

DRUGS (7)
  1. TEGRETOL [Suspect]
     Active Substance: CARBAMAZEPINE
     Indication: BIPOLAR I DISORDER
     Dosage: 200 MG, BID
     Route: 048
     Dates: start: 20150615
  2. IXEL [Concomitant]
     Active Substance: MILNACIPRAN HYDROCHLORIDE
     Indication: BIPOLAR I DISORDER
     Dosage: 2 DF, BID (LONG TERM TREATMENT)
     Route: 065
  3. TEGRETOL [Suspect]
     Active Substance: CARBAMAZEPINE
     Dosage: 200 MG, QD
     Route: 048
     Dates: start: 20150629
  4. IXEL [Concomitant]
     Active Substance: MILNACIPRAN HYDROCHLORIDE
     Dosage: 1 DF, AT THE MORNING FOR 2 OR 3 DAYS
     Route: 065
     Dates: start: 20150630
  5. IXEL [Concomitant]
     Active Substance: MILNACIPRAN HYDROCHLORIDE
     Dosage: 1 DF, BID
     Route: 065
  6. TEGRETOL [Suspect]
     Active Substance: CARBAMAZEPINE
     Dosage: 2 DF, QD
     Route: 048
     Dates: start: 20150615, end: 20150617
  7. IXEL [Concomitant]
     Active Substance: MILNACIPRAN HYDROCHLORIDE
     Dosage: 2 DF, MORNING
     Route: 065
     Dates: start: 20150621

REACTIONS (6)
  - Nausea [Recovered/Resolved]
  - Accommodation disorder [Recovered/Resolved]
  - Accidental overdose [Recovered/Resolved]
  - Medication error [Recovered/Resolved]
  - Headache [Recovered/Resolved]
  - Vomiting [Recovered/Resolved]

NARRATIVE: CASE EVENT DATE: 20150615
